FAERS Safety Report 5474039-1 (Version None)
Quarter: 2007Q4

REPORT INFORMATION
  Report Type: 
  Country: None (occurrence: None)
  Receive Date: 20071002
  Receipt Date: 20070921
  Transmission Date: 20080405
  Serious: Yes (Other)
  Sender: FDA-Public Use
  Company Number: PHNU2007DE03123

PATIENT
  Sex: Male

DRUGS (2)
  1. LEPONEX [Suspect]
     Dosage: 200 MG/DAY
     Route: 048
     Dates: start: 20050101
  2. CLOZAPINE [Suspect]
     Route: 065

REACTIONS (2)
  - BUNDLE BRANCH BLOCK RIGHT [None]
  - ELECTROCARDIOGRAM QRS COMPLEX PROLONGED [None]
